FAERS Safety Report 4990678-6 (Version None)
Quarter: 2006Q2

REPORT INFORMATION
  Report Type: 
  Country: None (occurrence: None)
  Receive Date: 20060427
  Receipt Date: 20060420
  Transmission Date: 20061013
  Serious: Yes (Hospitalization)
  Sender: FDA-Public Use
  Company Number: S06-USA-00902-01

PATIENT
  Age: 60 Year
  Sex: Female
  Weight: 73 kg

DRUGS (6)
  1. CAMPRAL [Suspect]
     Indication: ALCOHOLISM
     Dosage: 666 MG TID PO
     Route: 048
     Dates: start: 20060101, end: 20060323
  2. TOPROL-XL [Concomitant]
  3. PREVACID [Concomitant]
  4. PROTONIX [Concomitant]
  5. FOSAMAX [Concomitant]
  6. HEPARIN [Concomitant]

REACTIONS (6)
  - DEEP VEIN THROMBOSIS [None]
  - FALL [None]
  - FRACTURED SACRUM [None]
  - LUMBAR VERTEBRAL FRACTURE [None]
  - PAIN IN EXTREMITY [None]
  - SPINAL COMPRESSION FRACTURE [None]
